FAERS Safety Report 9325706 (Version 1)
Quarter: 2013Q2

REPORT INFORMATION
  Report Type: Spontaneous
  Country: US (occurrence: None)
  Receive Date: 20130603
  Receipt Date: 20130603
  Transmission Date: 20140414
  Serious: Yes (Death)
  Sender: FDA-Public Use
  Company Number: None

PATIENT
  Sex: 0

DRUGS (2)
  1. SANCUSO [Suspect]
     Indication: VOMITING
     Dosage: 1 PATCH Q7DAYS TRANSDERMAL
     Route: 062
     Dates: start: 20130426
  2. SANCUSO [Suspect]
     Indication: NAUSEA
     Dosage: 1 PATCH Q7DAYS TRANSDERMAL
     Route: 062
     Dates: start: 20130426

REACTIONS (1)
  - Death [None]
